FAERS Safety Report 18101388 (Version 1)
Quarter: 2020Q3

REPORT INFORMATION
  Report Type: Spontaneous
  Country: US (occurrence: US)
  Receive Date: 20200801
  Receipt Date: 20200801
  Transmission Date: 20201103
  Serious: No
  Sender: FDA-Public Use
  Company Number: US-ASTRAZENECA-2020SE94439

PATIENT
  Age: 48 Year
  Sex: Female

DRUGS (1)
  1. ZOMIG [Suspect]
     Active Substance: ZOLMITRIPTAN
     Dosage: 2.50 MG ONE SPRAY IN ONE NOSTRIL AT ONSET OF MIGRAINE MAY REPEAT IN TWO HOURS IF NEEDED.
     Route: 045

REACTIONS (1)
  - Weight increased [Unknown]
